FAERS Safety Report 15763917 (Version 1)
Quarter: 2018Q4

REPORT INFORMATION
  Report Type: Spontaneous
  Country: FR (occurrence: FR)
  Receive Date: 20181227
  Receipt Date: 20181227
  Transmission Date: 20190205
  Serious: Yes (Other)
  Sender: FDA-Public Use
  Company Number: FR-TEVA-2018-FR-991770

PATIENT
  Age: 3 Year
  Sex: Female
  Weight: 15 kg

DRUGS (1)
  1. CISPLATINE [Suspect]
     Active Substance: CISPLATIN
     Indication: HEPATOBLASTOMA
     Route: 042
     Dates: start: 201808, end: 201808

REACTIONS (1)
  - Administration site extravasation [Recovered/Resolved]

NARRATIVE: CASE EVENT DATE: 20180807
